FAERS Safety Report 4332349-5 (Version None)
Quarter: 2004Q2

REPORT INFORMATION
  Report Type: 
  Country: None (occurrence: None)
  Receive Date: 20040401
  Receipt Date: 20040322
  Transmission Date: 20050107
  Serious: Yes (Hospitalization)
  Sender: FDA-Public Use
  Company Number: SE-JNJFOC-20040105311

PATIENT
  Age: 50 Year
  Sex: Female

DRUGS (9)
  1. REMICADE [Suspect]
     Indication: SPONDYLITIS
     Dosage: 200 MG, 1 IN 6 WEEK, INTRAVENOUS
     Route: 042
     Dates: start: 20030101, end: 20031201
  2. METHOTREXATE [Concomitant]
  3. FOLACIN (FOLACIN) [Concomitant]
  4. ORALOVITE (PARENTROVITE) TABLETS [Concomitant]
  5. ACETAMINOPHEN [Concomitant]
  6. LANZOPRAZOLE (LANSOPRAZOLE) [Concomitant]
  7. CALCICHEW D3 (CALCIUM CARBONATE) [Concomitant]
  8. TRADOLAN (TRAMADOL HYDROCHLORIDE) [Concomitant]
  9. CELEBRA (CELECOXIB) [Concomitant]

REACTIONS (4)
  - BENIGN NEOPLASM [None]
  - BREAST CANCER [None]
  - CYST [None]
  - POLYP [None]
